FAERS Safety Report 11069325 (Version 2)
Quarter: 2015Q2

REPORT INFORMATION
  Report Type: Spontaneous
  Country: JP (occurrence: JP)
  Receive Date: 20150427
  Receipt Date: 20150430
  Transmission Date: 20150821
  Serious: Yes (Other)
  Sender: FDA-Public Use
  Company Number: JP-ASTRAZENECA-2015SE35819

PATIENT
  Sex: Male

DRUGS (24)
  1. MEROPEN [Suspect]
     Active Substance: MEROPENEM
     Indication: SEPSIS
     Route: 041
     Dates: start: 20140827, end: 20140830
  2. CUBICIN [Suspect]
     Active Substance: DAPTOMYCIN
     Indication: OFF LABEL USE
     Dosage: 350 MG
     Route: 042
     Dates: start: 20140827, end: 20140830
  3. ZOSYN [Suspect]
     Active Substance: PIPERACILLIN SODIUM\TAZOBACTAM SODIUM
     Indication: OSTEOMYELITIS
     Dosage: NON-AZ DRUG
     Route: 042
     Dates: start: 20140725, end: 20140803
  4. CEFAZOLIN SODIUM. [Suspect]
     Active Substance: CEFAZOLIN SODIUM
     Indication: SEPSIS
     Dosage: FROM 04-JUL-2014 TILL 05-JUL-2014. REACTION: RASH
     Route: 065
  5. ZYVOX [Suspect]
     Active Substance: LINEZOLID
     Indication: SEPSIS
     Route: 065
  6. CONCENTRATED HUMAN RED BLOOD CELLS [Concomitant]
     Route: 041
     Dates: start: 20140729, end: 20140729
  7. VANCOMYCIN [Suspect]
     Active Substance: VANCOMYCIN
     Indication: OSTEOMYELITIS
     Route: 065
     Dates: start: 20140805, end: 20140820
  8. MEROPEN [Suspect]
     Active Substance: MEROPENEM
     Indication: OSTEOMYELITIS
     Route: 041
     Dates: start: 20140827, end: 20140830
  9. ZOSYN [Suspect]
     Active Substance: PIPERACILLIN SODIUM\TAZOBACTAM SODIUM
     Indication: SEPSIS
     Dosage: NON-AZ DRUG, REACTION: GASTROINTESTINAL DISORDER
     Route: 042
  10. ZOSYN [Suspect]
     Active Substance: PIPERACILLIN SODIUM\TAZOBACTAM SODIUM
     Indication: OSTEOMYELITIS
     Dosage: NON-AZ DRUG, REACTION: GASTROINTESTINAL DISORDER
     Route: 042
  11. VANCOMYCIN [Suspect]
     Active Substance: VANCOMYCIN
     Indication: SEPSIS
     Route: 065
     Dates: start: 20140805, end: 20140820
  12. VANCOMYCIN [Suspect]
     Active Substance: VANCOMYCIN
     Indication: SEPSIS
     Route: 065
     Dates: start: 20140805, end: 20140820
  13. CEFAZOLIN SODIUM. [Suspect]
     Active Substance: CEFAZOLIN SODIUM
     Indication: SEPSIS
     Dosage: REACTION: GASTROINTESTINAL DISORDER
     Route: 051
  14. CEFAZOLIN SODIUM. [Suspect]
     Active Substance: CEFAZOLIN SODIUM
     Indication: INFECTION
     Dosage: REACTION: GASTROINTESTINAL DISORDER
     Route: 051
  15. CUBICIN [Suspect]
     Active Substance: DAPTOMYCIN
     Indication: STAPHYLOCOCCAL INFECTION
     Dosage: 350 MG
     Route: 042
     Dates: start: 20140827, end: 20140830
  16. MEROPEN [Suspect]
     Active Substance: MEROPENEM
     Indication: SEPSIS
     Route: 041
     Dates: start: 20140803, end: 20140805
  17. MEROPEN [Suspect]
     Active Substance: MEROPENEM
     Indication: OSTEOMYELITIS
     Route: 041
     Dates: start: 20140803, end: 20140805
  18. ZOSYN [Suspect]
     Active Substance: PIPERACILLIN SODIUM\TAZOBACTAM SODIUM
     Indication: SEPSIS
     Dosage: NON-AZ DRUG
     Route: 042
     Dates: start: 20140725, end: 20140803
  19. ZYVOX [Suspect]
     Active Substance: LINEZOLID
     Indication: OSTEOMYELITIS
     Route: 065
  20. CUBICIN [Suspect]
     Active Substance: DAPTOMYCIN
     Indication: SEPSIS
     Dosage: 350 MG
     Route: 042
     Dates: start: 20140827, end: 20140830
  21. CONCENTRATED HUMAN RED BLOOD CELLS [Concomitant]
     Route: 041
     Dates: start: 20140723, end: 20140723
  22. CONCENTRATED HUMAN RED BLOOD CELLS [Concomitant]
     Route: 041
     Dates: start: 20140826, end: 20140826
  23. CUBICIN [Suspect]
     Active Substance: DAPTOMYCIN
     Indication: OSTEOMYELITIS
     Dosage: 350 MG
     Route: 042
     Dates: start: 20140827, end: 20140830
  24. CEFAZOLIN SODIUM. [Suspect]
     Active Substance: CEFAZOLIN SODIUM
     Indication: INFECTION
     Dosage: FROM 04-JUL-2014 TILL 05-JUL-2014. REACTION: RASH
     Route: 065

REACTIONS (2)
  - Erythema [Unknown]
  - Off label use [Unknown]
